FAERS Safety Report 5582969-5 (Version None)
Quarter: 2007Q4

REPORT INFORMATION
  Report Type: 
  Country: None (occurrence: None)
  Receive Date: 20071231
  Receipt Date: 20071227
  Transmission Date: 20080405
  Serious: Yes (Death)
  Sender: FDA-Public Use
  Company Number: 2007SP022208

PATIENT
  Age: 70 Year
  Sex: Female
  Weight: 58.2 kg

DRUGS (6)
  1. PEG-INTRON [Suspect]
     Indication: HEPATITIS C
     Dosage: 80 MCG;QW;SC
     Route: 058
     Dates: start: 20070606, end: 20071010
  2. REBETOL [Suspect]
     Indication: HEPATITIS C
     Dosage: 600 MG;QD;PO
     Route: 048
     Dates: start: 20070606, end: 20071010
  3. DEPAS [Concomitant]
  4. ALESION [Concomitant]
  5. HYDROCORTISONE ACETATE [Concomitant]
  6. LIDOMEX [Concomitant]

REACTIONS (5)
  - DERMATITIS [None]
  - HAEMATOCRIT DECREASED [None]
  - PLATELET COUNT DECREASED [None]
  - RED BLOOD CELL COUNT ABNORMAL [None]
  - WHITE BLOOD CELL DISORDER [None]
